FAERS Safety Report 4569588-4 (Version None)
Quarter: 2005Q1

REPORT INFORMATION
  Report Type: 
  Country: None (occurrence: None)
  Receive Date: 20050201
  Receipt Date: 20050117
  Transmission Date: 20050727
  Serious: Yes (Hospitalization)
  Sender: FDA-Public Use
  Company Number: CA-2004-035863

PATIENT
  Age: 46 Year
  Sex: Male

DRUGS (6)
  1. BETASERON [Suspect]
     Indication: RELAPSING-REMITTING MULTIPLE SCLEROSIS
     Dosage: 8 MIU, EVERY 2D, SUBCUTANEOUS
     Route: 058
     Dates: start: 20040828
  2. AMANTADINE (AMANTADINE) [Concomitant]
  3. SOFLEX (DOCUSATE SODIUM) [Concomitant]
  4. BACLOFEN [Concomitant]
  5. AXID [Concomitant]
  6. LIPITOR /UNK/(ATORVASTATIN) [Concomitant]

REACTIONS (12)
  - ABDOMINAL PAIN [None]
  - CHILLS [None]
  - CHOLECYSTECTOMY [None]
  - CONDITION AGGRAVATED [None]
  - DECREASED APPETITE [None]
  - FEELING ABNORMAL [None]
  - HYPERHIDROSIS [None]
  - MEDICATION ERROR [None]
  - MULTIPLE SCLEROSIS [None]
  - NAUSEA [None]
  - PAIN [None]
  - VOMITING [None]
